FAERS Safety Report 10470379 (Version 1)
Quarter: 2014Q3

REPORT INFORMATION
  Report Type: Spontaneous
  Country: US (occurrence: None)
  Receive Date: 20140905
  Receipt Date: 20140905
  Transmission Date: 20150326
  Serious: Yes (Hospitalization)
  Sender: FDA-Public Use
  Company Number: A-US2014-96347

PATIENT
  Age: 50 Year
  Sex: Male

DRUGS (2)
  1. VELETRI [Suspect]
     Active Substance: EPOPROSTENOL
     Indication: PULMONARY ARTERIAL HYPERTENSION
     Route: 041
     Dates: start: 20140315
  2. LASIX [Concomitant]
     Active Substance: FUROSEMIDE

REACTIONS (10)
  - Insomnia [None]
  - Hot flush [None]
  - Chills [None]
  - Fatigue [None]
  - Depression [None]
  - Anxiety [None]
  - Dyspnoea [None]
  - Headache [None]
  - Pain in jaw [None]
  - Oedema [None]

NARRATIVE: CASE EVENT DATE: 201403
